FAERS Safety Report 10331179 (Version 1)
Quarter: 2014Q3

REPORT INFORMATION
  Report Type: Spontaneous
  Country: US (occurrence: US)
  Receive Date: 20140722
  Receipt Date: 20140722
  Transmission Date: 20150326
  Serious: Yes (Death, Hospitalization)
  Sender: FDA-Public Use
  Company Number: US-BEH-2014043888

PATIENT
  Age: 38 Year
  Sex: Male
  Weight: 89 kg

DRUGS (23)
  1. ZEMAIRA [Suspect]
     Active Substance: .ALPHA.1-PROTEINASE INHIBITOR HUMAN
     Dosage: 989 MG/VIAL; 0.08 ML/KG/MIN (7.2 ML/MIN)
     Route: 042
  2. SODIUM CHLORIDE. [Concomitant]
     Active Substance: SODIUM CHLORIDE
  3. SUCRALFATE. [Concomitant]
     Active Substance: SUCRALFATE
  4. ALL OTHER THERAPEUTIC PRODUCTS [Concomitant]
     Active Substance: UNSPECIFIED INGREDIENT
  5. AVELOX [Concomitant]
     Active Substance: MOXIFLOXACIN HYDROCHLORIDE
  6. EPIPEN [Concomitant]
     Active Substance: EPINEPHRINE
  7. NORCO [Concomitant]
     Active Substance: ACETAMINOPHEN\HYDROCODONE BITARTRATE
  8. OXYGEN. [Concomitant]
     Active Substance: OXYGEN
  9. SPIRIVA [Concomitant]
     Active Substance: TIOTROPIUM BROMIDE MONOHYDRATE
  10. LEVOTHYROXINE [Concomitant]
     Active Substance: LEVOTHYROXINE
  11. PREDNISONE. [Concomitant]
     Active Substance: PREDNISONE
  12. LEVOCETIRIZINE [Concomitant]
     Active Substance: LEVOCETIRIZINE
  13. IBUPROFEN. [Concomitant]
     Active Substance: IBUPROFEN
  14. DIPHENHYDRAMINE [Concomitant]
     Active Substance: DIPHENHYDRAMINE
  15. ALBUTEROL HFA [Concomitant]
     Active Substance: ALBUTEROL SULFATE
  16. ZOLOFT [Concomitant]
     Active Substance: SERTRALINE HYDROCHLORIDE
  17. ALBUTEROL. [Concomitant]
     Active Substance: ALBUTEROL
     Dosage: SOLUTION
  18. ZEMAIRA [Suspect]
     Active Substance: .ALPHA.1-PROTEINASE INHIBITOR HUMAN
     Indication: ALPHA-1 ANTI-TRYPSIN DEFICIENCY
     Dosage: 989 MG/VIAL; 7.2 ML/MIN
     Route: 042
  19. CEFDINIR. [Concomitant]
     Active Substance: CEFDINIR
  20. PERFORMIST [Concomitant]
  21. SYMBICORT [Concomitant]
     Active Substance: BUDESONIDE\FORMOTEROL FUMARATE DIHYDRATE
  22. LMX [Concomitant]
  23. TYLENOL [Concomitant]
     Active Substance: ACETAMINOPHEN

REACTIONS (2)
  - Mechanical ventilation [Unknown]
  - Death [Fatal]

NARRATIVE: CASE EVENT DATE: 20140711
